FAERS Safety Report 10161043 (Version 1)
Quarter: 2014Q2

REPORT INFORMATION
  Report Type: Spontaneous
  Country: US (occurrence: US)
  Receive Date: 20140508
  Receipt Date: 20140508
  Transmission Date: 20141212
  Serious: No
  Sender: FDA-Public Use
  Company Number: US-PFIZER INC-2014124721

PATIENT
  Sex: Male

DRUGS (1)
  1. NIFEDIPINE [Suspect]
     Indication: BLOOD PRESSURE ABNORMAL
     Dosage: 30 MG, UNK

REACTIONS (4)
  - Oedema peripheral [Unknown]
  - Feeling hot [Unknown]
  - Limb discomfort [Unknown]
  - Rheumatic disorder [Unknown]
